FAERS Safety Report 24386509 (Version 1)
Quarter: 2024Q4

REPORT INFORMATION
  Report Type: Spontaneous
  Country: US (occurrence: US)
  Receive Date: 20241002
  Receipt Date: 20241002
  Transmission Date: 20250115
  Serious: Yes (Hospitalization, Other)
  Sender: BOEHRINGER INGELHEIM
  Company Number: US-BoehringerIngelheim-2024-BI-053192

PATIENT
  Age: 58 Year
  Sex: Male

DRUGS (4)
  1. EMPAGLIFLOZIN [Suspect]
     Active Substance: EMPAGLIFLOZIN
     Indication: Type 2 diabetes mellitus
  2. INSULIN NOS [Concomitant]
     Active Substance: INSULIN NOS
     Indication: Product used for unknown indication
  3. MITOMYCIN C [Concomitant]
     Active Substance: MITOMYCIN
     Indication: Product used for unknown indication
  4. CISPLATIN [Concomitant]
     Active Substance: CISPLATIN
     Indication: Product used for unknown indication

REACTIONS (7)
  - Euglycaemic diabetic ketoacidosis [Recovered/Resolved]
  - Adult failure to thrive [Unknown]
  - Post procedural complication [Unknown]
  - Metabolic acidosis [Recovered/Resolved]
  - Respiratory alkalosis [Recovered/Resolved]
  - Acidosis hyperchloraemic [Recovered/Resolved]
  - Acute kidney injury [Unknown]
